FAERS Safety Report 8113673-7 (Version None)
Quarter: 2012Q1

REPORT INFORMATION
  Report Type: 
  Country: None (occurrence: None)
  Receive Date: 20120203
  Receipt Date: 20120126
  Transmission Date: 20120608
  Serious: Yes (Hospitalization, Other)
  Sender: FDA-Public Use
  Company Number: US-AMGEN-USASP2012005504

PATIENT
  Age: 82 Year
  Sex: Female
  Weight: 76.644 kg

DRUGS (1)
  1. ENBREL [Suspect]
     Indication: RHEUMATOID ARTHRITIS
     Dosage: 50 MG, QWK
     Dates: start: 20070301

REACTIONS (8)
  - BLOOD PRESSURE INCREASED [None]
  - GASTROOESOPHAGEAL REFLUX DISEASE [None]
  - ABDOMINAL PAIN [None]
  - CHEST PAIN [None]
  - HEART RATE INCREASED [None]
  - COLON CANCER [None]
  - PAIN IN EXTREMITY [None]
  - DYSPNOEA [None]
